FAERS Safety Report 13941770 (Version 1)
Quarter: 2017Q3

REPORT INFORMATION
  Report Type: Spontaneous
  Country: US (occurrence: US)
  Receive Date: 20170906
  Receipt Date: 20170906
  Transmission Date: 20171127
  Serious: No
  Sender: FDA-Public Use
  Company Number: None

PATIENT
  Age: 47 Year
  Sex: Female
  Weight: 102.15 kg

DRUGS (11)
  1. OXYBUTININ [Concomitant]
     Active Substance: OXYBUTYNIN
  2. DESVENLAFAXINE. [Concomitant]
     Active Substance: DESVENLAFAXINE
  3. NORTRIPTYLINE 10MG [Suspect]
     Active Substance: NORTRIPTYLINE
     Indication: INSOMNIA
     Dosage: ?          QUANTITY:1 CAPSULE(S); AT BEDTIME ORAL?
     Route: 048
     Dates: start: 20170810, end: 20170906
  4. SINGULAIR [Concomitant]
     Active Substance: MONTELUKAST SODIUM
  5. DIAMOX SEQUELS [Concomitant]
     Active Substance: ACETAZOLAMIDE
  6. TOPAMAX [Concomitant]
     Active Substance: TOPIRAMATE
  7. LAMICTAL [Concomitant]
     Active Substance: LAMOTRIGINE
  8. ROBAXIN [Concomitant]
     Active Substance: METHOCARBAMOL
  9. OXYCODONE [Concomitant]
     Active Substance: OXYCODONE
  10. CELEBREX [Concomitant]
     Active Substance: CELECOXIB
  11. ARMOUR THYROID [Concomitant]
     Active Substance: THYROID, PORCINE

REACTIONS (2)
  - Aphasia [None]
  - Memory impairment [None]

NARRATIVE: CASE EVENT DATE: 20170814
